FAERS Safety Report 23240565 (Version 1)
Quarter: 2023Q4

REPORT INFORMATION
  Report Type: Spontaneous
  Country: US (occurrence: US)
  Receive Date: 20231129
  Receipt Date: 20231129
  Transmission Date: 20240109
  Serious: Yes (Hospitalization)
  Sender: FDA-Public Use
  Company Number: US-drreddys-LIT/USA/23/0187266

PATIENT
  Age: 61 Year
  Sex: Male

DRUGS (2)
  1. CINACALCET [Suspect]
     Active Substance: CINACALCET
     Indication: Parathyroid disorder
  2. CINACALCET [Suspect]
     Active Substance: CINACALCET

REACTIONS (3)
  - Paraesthesia [Recovered/Resolved]
  - Hypocalcaemia [Recovered/Resolved]
  - Condition aggravated [Recovered/Resolved]
